FAERS Safety Report 13894069 (Version 2)
Quarter: 2017Q4

REPORT INFORMATION
  Report Type: Report from Study
  Country: US (occurrence: US)
  Receive Date: 20170822
  Receipt Date: 20171003
  Transmission Date: 20180320
  Serious: Yes (Hospitalization)
  Sender: FDA-Public Use
  Company Number: US-JNJFOC-20170818858

PATIENT
  Age: 77 Year
  Sex: Male

DRUGS (21)
  1. IMBRUVICA [Suspect]
     Active Substance: IBRUTINIB
     Indication: CHRONIC LYMPHOCYTIC LEUKAEMIA
     Route: 048
     Dates: start: 20170428
  2. FUROSEMIDE. [Concomitant]
     Active Substance: FUROSEMIDE
     Dates: start: 20170602
  3. ALBUTEROL SULFATE. [Concomitant]
     Active Substance: ALBUTEROL SULFATE
     Dosage: 2 PUFFS EVERY 6 HOURS AS NEEDED
     Dates: start: 20170705
  4. LOSARTAN POTASSIUM. [Concomitant]
     Active Substance: LOSARTAN POTASSIUM
     Dates: start: 20170421
  5. PREDNISONE. [Concomitant]
     Active Substance: PREDNISONE
     Dates: start: 20170622
  6. FUROSEMIDE. [Concomitant]
     Active Substance: FUROSEMIDE
     Dates: start: 20170609
  7. SALMETEROL [Concomitant]
     Active Substance: SALMETEROL
     Dosage: 50 UG UNK
  8. LOVENOX [Suspect]
     Active Substance: ENOXAPARIN SODIUM
     Indication: PULMONARY EMBOLISM
     Route: 065
     Dates: start: 20170130, end: 20170721
  9. ALBUTEROL SULFATE. [Concomitant]
     Active Substance: ALBUTEROL SULFATE
     Dosage: 2.5 MG/3ML
     Dates: start: 20170424
  10. ASCORBIC ACID. [Concomitant]
     Active Substance: ASCORBIC ACID
     Dates: start: 20170421
  11. ASPIRIN. [Suspect]
     Active Substance: ASPIRIN
     Indication: PRODUCT USED FOR UNKNOWN INDICATION
     Route: 048
  12. FLUTICASONE. [Concomitant]
     Active Substance: FLUTICASONE
     Dosage: 250-50 MCG, 1 PUFF EVERY 12 HOURS
     Dates: start: 20170421
  13. FUROSEMIDE. [Concomitant]
     Active Substance: FUROSEMIDE
     Dates: start: 20170818
  14. POLYETHYLENE GLYCOL [Concomitant]
     Active Substance: POLYETHYLENE GLYCOLS
     Dosage: 1 PACKET DAILY PRN
     Dates: start: 20170424
  15. LATANOPROST. [Concomitant]
     Active Substance: LATANOPROST
     Dosage: 1 DROP EACH EYE AT BEDTIME
     Dates: start: 20170421
  16. IMBRUVICA [Suspect]
     Active Substance: IBRUTINIB
     Indication: CHRONIC LYMPHOCYTIC LEUKAEMIA
     Route: 048
     Dates: start: 20170517
  17. POTASSIUM CHLORIDE. [Concomitant]
     Active Substance: POTASSIUM CHLORIDE
     Dosage: FOR THREE DAYS TOTAL
  18. PREDNISONE. [Concomitant]
     Active Substance: PREDNISONE
     Dates: start: 20170820
  19. PREDNISONE. [Concomitant]
     Active Substance: PREDNISONE
  20. COD LIVER OIL [Concomitant]
     Active Substance: COD LIVER OIL
     Dates: start: 20170421
  21. GLIMEPIRIDE. [Concomitant]
     Active Substance: GLIMEPIRIDE

REACTIONS (4)
  - Nephrolithiasis [Recovered/Resolved]
  - Pneumonia [Unknown]
  - Productive cough [Unknown]
  - Muscle spasms [Unknown]

NARRATIVE: CASE EVENT DATE: 20170716
